FAERS Safety Report 6976295-7 (Version None)
Quarter: 2010Q3

REPORT INFORMATION
  Report Type: 
  Country: None (occurrence: None)
  Receive Date: 20100910
  Receipt Date: 20100907
  Transmission Date: 20110219
  Serious: Yes (Life-Threatening, Hospitalization)
  Sender: FDA-Public Use
  Company Number: JP-ASTRAZENECA-2010SE36440

PATIENT
  Age: 32187 Day
  Sex: Female
  Weight: 42 kg

DRUGS (8)
  1. IRESSA [Suspect]
     Indication: LUNG ADENOCARCINOMA
     Route: 048
     Dates: start: 20100607, end: 20100611
  2. IRESSA [Suspect]
     Route: 048
     Dates: start: 20100616, end: 20100725
  3. OXYCONTIN [Concomitant]
     Indication: PAIN
     Route: 048
     Dates: start: 20100607, end: 20100610
  4. GASMOTIN [Concomitant]
     Indication: DECREASED APPETITE
     Route: 048
     Dates: start: 20100608, end: 20100614
  5. BIOFERMIN [Concomitant]
     Indication: DIARRHOEA
     Route: 048
     Dates: start: 20100610, end: 20100726
  6. LOPEMIN [Concomitant]
     Indication: DIARRHOEA
     Route: 048
     Dates: start: 20100610, end: 20100726
  7. RINDERON [Concomitant]
     Indication: DECREASED APPETITE
     Route: 048
     Dates: start: 20100615, end: 20100721
  8. FUROSEMIDE [Concomitant]
     Indication: OEDEMA
     Route: 048
     Dates: start: 20100615, end: 20100726

REACTIONS (2)
  - DIARRHOEA [None]
  - LUNG DISORDER [None]
